FAERS Safety Report 4333897-4 (Version None)
Quarter: 2004Q2

REPORT INFORMATION
  Report Type: 
  Country: None (occurrence: None)
  Receive Date: 20040402
  Receipt Date: 20040329
  Transmission Date: 20050107
  Serious: Yes (Hospitalization)
  Sender: FDA-Public Use
  Company Number: USA-2003-0010801

PATIENT
  Age: 50 Year
  Sex: Female

DRUGS (6)
  1. MORPHINE SULFATE [Suspect]
     Indication: PAIN
     Dosage: 1500 MG, SEE TEXT, ORAL
     Route: 048
  2. CYTOTEC [Concomitant]
  3. PRILOSEC [Concomitant]
  4. MECLIZINE [Concomitant]
  5. DIAZEPAM [Concomitant]
  6. LEVOXYL [Concomitant]

REACTIONS (3)
  - CELLULITIS [None]
  - DERMATITIS BULLOUS [None]
  - SKIN ULCER [None]
